FAERS Safety Report 8000276-8 (Version None)
Quarter: 2011Q4

REPORT INFORMATION
  Report Type: 
  Country: None (occurrence: None)
  Receive Date: 20111220
  Receipt Date: 20111220
  Transmission Date: 20120403
  Serious: Yes (Other)
  Sender: FDA-Public Use
  Company Number: None

PATIENT
  Sex: Female
  Weight: 81.6475 kg

DRUGS (3)
  1. SEROQUEL [Suspect]
     Indication: BIPOLAR II DISORDER
     Dosage: SEROQUEL 150MG XR PO BID
     Route: 048
     Dates: start: 20111024
  2. LITHIUM CARBONATE [Concomitant]
  3. PEXEVA [Concomitant]

REACTIONS (2)
  - ELECTROCARDIOGRAM QT PROLONGED [None]
  - VENTRICULAR EXTRASYSTOLES [None]
